FAERS Safety Report 20572554 (Version 1)
Quarter: 2022Q1

REPORT INFORMATION
  Report Type: Spontaneous
  Country: US (occurrence: None)
  Receive Date: 20220308
  Receipt Date: 20220308
  Transmission Date: 20220423
  Serious: Yes (Other)
  Sender: FDA-Public Use
  Company Number: None

PATIENT
  Age: 56 Year
  Sex: Female
  Weight: 76.5 kg

DRUGS (7)
  1. OZEMPIC [Suspect]
     Active Substance: SEMAGLUTIDE
     Indication: Glycosylated haemoglobin
     Dosage: OTHER QUANTITY : 1 INJECTION(S);?OTHER FREQUENCY : 1 WEEK;?
     Route: 030
     Dates: start: 20220218
  2. Vit D 50,000 units [Concomitant]
  3. Fenobibrate 160 mg [Concomitant]
  4. Liothyroine 5mcg [Concomitant]
  5. Levothyroxine 0.025mg [Concomitant]
  6. Mag-Oxide 400 mg [Concomitant]
  7. LOSARTAN [Concomitant]
     Active Substance: LOSARTAN

REACTIONS (7)
  - Diarrhoea [None]
  - Vomiting [None]
  - Constipation [None]
  - Abdominal distension [None]
  - Flank pain [None]
  - Nausea [None]
  - Epiploic appendagitis [None]

NARRATIVE: CASE EVENT DATE: 20220226
